FAERS Safety Report 4525641-2 (Version None)
Quarter: 2004Q4

REPORT INFORMATION
  Report Type: 
  Country: None (occurrence: None)
  Receive Date: 20041116
  Receipt Date: 20040929
  Transmission Date: 20050328
  Serious: No
  Sender: FDA-Public Use
  Company Number: S04-USA-06685-01

PATIENT
  Age: 81 Year
  Sex: Male

DRUGS (4)
  1. NAMENDA [Suspect]
     Indication: DEMENTIA
  2. PROZAC [Concomitant]
  3. REMINYL [Concomitant]
  4. PRILOSEC [Concomitant]

REACTIONS (1)
  - HAEMATURIA [None]
